FAERS Safety Report 5516928-5 (Version None)
Quarter: 2007Q4

REPORT INFORMATION
  Report Type: 
  Country: None (occurrence: None)
  Receive Date: 20071114
  Receipt Date: 20070605
  Transmission Date: 20080405
  Serious: No
  Sender: FDA-Public Use
  Company Number: A0654041A

PATIENT
  Age: 49 Year
  Sex: Female

DRUGS (2)
  1. COMMIT [Suspect]
     Dates: start: 20070603
  2. NICORETTE [Suspect]

REACTIONS (11)
  - CHAPPED LIPS [None]
  - EYE PRURITUS [None]
  - GINGIVAL DISCOLOURATION [None]
  - GINGIVAL SWELLING [None]
  - GINGIVITIS [None]
  - HYPERSENSITIVITY [None]
  - LACRIMATION INCREASED [None]
  - ORAL DISCOMFORT [None]
  - ORAL PRURITUS [None]
  - PRURITUS [None]
  - THERMAL BURN [None]
